FAERS Safety Report 12330713 (Version 1)
Quarter: 2016Q2

REPORT INFORMATION
  Report Type: Spontaneous
  Country: DE (occurrence: DE)
  Receive Date: 20160504
  Receipt Date: 20160504
  Transmission Date: 20160815
  Serious: Yes (Other)
  Sender: FDA-Public Use
  Company Number: DE-ROCHE-1752123

PATIENT
  Sex: Male

DRUGS (8)
  1. EYLEA [Suspect]
     Active Substance: AFLIBERCEPT
     Route: 050
     Dates: start: 201508
  2. LUCENTIS [Suspect]
     Active Substance: RANIBIZUMAB
     Indication: PRODUCT USED FOR UNKNOWN INDICATION
     Route: 050
     Dates: start: 201505
  3. EYLEA [Suspect]
     Active Substance: AFLIBERCEPT
     Route: 050
     Dates: start: 201601
  4. EYLEA [Suspect]
     Active Substance: AFLIBERCEPT
     Route: 050
     Dates: start: 201512
  5. EYLEA [Suspect]
     Active Substance: AFLIBERCEPT
     Indication: PRODUCT USED FOR UNKNOWN INDICATION
     Route: 050
     Dates: start: 201507
  6. EYLEA [Suspect]
     Active Substance: AFLIBERCEPT
     Route: 050
     Dates: start: 201510
  7. EYLEA [Suspect]
     Active Substance: AFLIBERCEPT
     Route: 050
     Dates: start: 201509
  8. EYLEA [Suspect]
     Active Substance: AFLIBERCEPT
     Route: 050
     Dates: start: 201511

REACTIONS (1)
  - Cerebrovascular accident [Unknown]

NARRATIVE: CASE EVENT DATE: 201510
